FAERS Safety Report 11334850 (Version 1)
Quarter: 2015Q3

REPORT INFORMATION
  Report Type: Spontaneous
  Country: US (occurrence: None)
  Receive Date: 20150731
  Receipt Date: 20150731
  Transmission Date: 20151125
  Serious: Yes (Other)
  Sender: FDA-Public Use
  Company Number: INT_00851_2015

PATIENT
  Sex: Female

DRUGS (1)
  1. TAXOL [Suspect]
     Active Substance: PACLITAXEL
     Indication: BREAST CANCER METASTATIC
     Dosage: DF

REACTIONS (2)
  - Device issue [None]
  - Drug intolerance [None]

NARRATIVE: CASE EVENT DATE: 2015
